FAERS Safety Report 13656490 (Version 1)
Quarter: 2017Q2

REPORT INFORMATION
  Report Type: Spontaneous
  Country: GB (occurrence: GB)
  Receive Date: 20170615
  Receipt Date: 20170615
  Transmission Date: 20170830
  Serious: Yes (Other)
  Sender: FDA-Public Use
  Company Number: GB-TEVA-776334ACC

PATIENT
  Age: 66 Year
  Sex: Female
  Weight: 86.17 kg

DRUGS (1)
  1. TEVA UK LETROZOLE [Suspect]
     Active Substance: LETROZOLE
     Indication: INVASIVE DUCTAL BREAST CARCINOMA
     Route: 048
     Dates: start: 20170214, end: 20170402

REACTIONS (9)
  - Depressed mood [Recovered/Resolved]
  - Headache [Recovered/Resolved]
  - Malaise [Recovered/Resolved]
  - Pollakiuria [Recovered/Resolved]
  - Feeling abnormal [Unknown]
  - Disturbance in attention [Recovered/Resolved]
  - Insomnia [Recovered/Resolved]
  - Functional gastrointestinal disorder [Recovered/Resolved]
  - Product substitution issue [Unknown]

NARRATIVE: CASE EVENT DATE: 20170218
